FAERS Safety Report 6610308-7 (Version None)
Quarter: 2010Q1

REPORT INFORMATION
  Report Type: 
  Country: None (occurrence: None)
  Receive Date: 20100302
  Receipt Date: 20100218
  Transmission Date: 20100710
  Serious: Yes (Other)
  Sender: FDA-Public Use
  Company Number: PHHY2009CA29899

PATIENT
  Sex: Female

DRUGS (8)
  1. EXJADE [Suspect]
     Indication: THALASSAEMIA BETA
     Dosage: 1000 MG, QD
     Route: 048
     Dates: start: 20090525
  2. SYNTHROID [Suspect]
     Dosage: UNK
     Dates: start: 20090601
  3. SYNTHROID [Suspect]
     Dosage: TAKE HALF THE DOSE
  4. FOLIC ACID [Concomitant]
  5. VITAMIN B6 [Concomitant]
  6. VITAMIN B-12 [Concomitant]
  7. CALCIUM W/VITAMIN D NOS [Concomitant]
  8. ANTACID TAB [Concomitant]
     Dosage: UNK

REACTIONS (12)
  - ABDOMINAL DISCOMFORT [None]
  - ABDOMINAL DISTENSION [None]
  - ABDOMINAL PAIN UPPER [None]
  - DIZZINESS [None]
  - DYSPEPSIA [None]
  - GASTROOESOPHAGEAL REFLUX DISEASE [None]
  - HEPATIC PAIN [None]
  - HYPOAESTHESIA [None]
  - MALAISE [None]
  - NAUSEA [None]
  - RENAL PAIN [None]
  - WEIGHT INCREASED [None]
